FAERS Safety Report 11277099 (Version 3)
Quarter: 2015Q3

REPORT INFORMATION
  Report Type: Spontaneous
  Country: US (occurrence: US)
  Receive Date: 20150716
  Receipt Date: 20150828
  Transmission Date: 20151125
  Serious: Yes (Hospitalization, Other)
  Sender: FDA-Public Use
  Company Number: US-PFIZER INC-2015235489

PATIENT
  Age: 54 Year
  Sex: Female
  Weight: 67 kg

DRUGS (2)
  1. DUAVEE [Suspect]
     Active Substance: BAZEDOXIFENE ACETATE\ESTROGENS, CONJUGATED
     Indication: MENOPAUSE
     Dosage: UNK UNK, 1X/DAY
     Route: 048
     Dates: start: 20140917, end: 20150710
  2. CRESTOR [Suspect]
     Active Substance: ROSUVASTATIN CALCIUM
     Dosage: UNK

REACTIONS (6)
  - Carotid artery thrombosis [Unknown]
  - Cerebrovascular accident [Recovered/Resolved]
  - VIIth nerve paralysis [Unknown]
  - Dysarthria [Unknown]
  - Aphasia [Unknown]
  - Headache [Unknown]

NARRATIVE: CASE EVENT DATE: 20150706
